FAERS Safety Report 23282010 (Version 1)
Quarter: 2023Q4

REPORT INFORMATION
  Report Type: Spontaneous
  Country: US (occurrence: None)
  Receive Date: 20231208
  Receipt Date: 20231208
  Transmission Date: 20240110
  Serious: Yes (Other)
  Sender: FDA-Public Use
  Company Number: None

PATIENT
  Age: 76 Year
  Sex: Female

DRUGS (14)
  1. AMBRISENTAN [Suspect]
     Active Substance: AMBRISENTAN
     Indication: Pulmonary hypertension
     Dosage: FREQUENCY : DAILY;?
     Route: 048
     Dates: start: 20160713
  2. TADALAFIL [Concomitant]
     Active Substance: TADALAFIL
  3. TORSEMIDE [Concomitant]
     Active Substance: TORSEMIDE
  4. ALLOPURINOL [Concomitant]
     Active Substance: ALLOPURINOL
  5. POTASSIUM CHLORIDE [Concomitant]
     Active Substance: POTASSIUM CHLORIDE
  6. APIXABAN [Concomitant]
     Active Substance: APIXABAN
  7. ALBUTEROL SULFATE [Concomitant]
     Active Substance: ALBUTEROL SULFATE
  8. ENTRESTO [Concomitant]
     Active Substance: SACUBITRIL\VALSARTAN
  9. ATORVASTATIN [Concomitant]
     Active Substance: ATORVASTATIN
  10. METOPROLOL [Concomitant]
     Active Substance: METOPROLOL
  11. ASPIRIN [Concomitant]
     Active Substance: ASPIRIN
  12. MAGNESIUM OXIDE [Concomitant]
     Active Substance: MAGNESIUM OXIDE
  13. ACETAMINOPHEN MVI [Concomitant]
  14. FERROUS SULFATE [Concomitant]
     Active Substance: FERROUS SULFATE

REACTIONS (2)
  - Back pain [None]
  - Musculoskeletal disorder [None]

NARRATIVE: CASE EVENT DATE: 20231126
